FAERS Safety Report 5912004-8 (Version None)
Quarter: 2008Q4

REPORT INFORMATION
  Report Type: 
  Country: None (occurrence: None)
  Receive Date: 20081008
  Receipt Date: 20081002
  Transmission Date: 20090506
  Serious: Yes (Other)
  Sender: FDA-Public Use
  Company Number: PHEH2008US08751

PATIENT
  Sex: Female
  Weight: 140.59 kg

DRUGS (1)
  1. GLEEVEC [Suspect]
     Indication: CHRONIC MYELOID LEUKAEMIA
     Dosage: 400 MG, QD
     Route: 048
     Dates: start: 20020101

REACTIONS (8)
  - BLOOD PRESSURE SYSTOLIC INCREASED [None]
  - BLOOD URINE PRESENT [None]
  - EYE SWELLING [None]
  - HEADACHE [None]
  - NIGHT SWEATS [None]
  - OEDEMA PERIPHERAL [None]
  - URINARY BLADDER HAEMORRHAGE [None]
  - WEIGHT INCREASED [None]
